FAERS Safety Report 9541789 (Version 1)
Quarter: 2013Q3

REPORT INFORMATION
  Report Type: Spontaneous
  Country: DE (occurrence: DE)
  Receive Date: 20130923
  Receipt Date: 20130923
  Transmission Date: 20140515
  Serious: Yes (Other)
  Sender: FDA-Public Use
  Company Number: DE-JNJFOC-20130910087

PATIENT
  Age: 94 Year
  Sex: Male
  Weight: 70 kg

DRUGS (1)
  1. RISPERDAL [Suspect]
     Indication: ACCIDENTAL EXPOSURE TO PRODUCT
     Dosage: 10 TABLETS.
     Route: 048
     Dates: start: 20130917, end: 20130917

REACTIONS (2)
  - Syncope [Unknown]
  - Accidental exposure to product [Unknown]
